FAERS Safety Report 5840309-8 (Version None)
Quarter: 2008Q3

REPORT INFORMATION
  Report Type: 
  Country: None (occurrence: None)
  Receive Date: 20080807
  Receipt Date: 20080807
  Transmission Date: 20090109
  Serious: No
  Sender: FDA-Public Use
  Company Number: None

PATIENT
  Sex: Female
  Weight: 74.3899 kg

DRUGS (1)
  1. LEVAQUIN [Suspect]
     Dosage: 750 MG  ONE A DAY, 10 DA
     Dates: start: 20080702, end: 20080711

REACTIONS (3)
  - ARTHRALGIA [None]
  - MUSCULOSKELETAL PAIN [None]
  - PHARMACEUTICAL PRODUCT COMPLAINT [None]
